FAERS Safety Report 16887458 (Version 2)
Quarter: 2025Q2

REPORT INFORMATION
  Report Type: Spontaneous
  Country: US (occurrence: US)
  Receive Date: 20191004
  Receipt Date: 20250630
  Transmission Date: 20250716
  Serious: Yes (Hospitalization, Other)
  Sender: AUROBINDO
  Company Number: US-AUROBINDO-AUR-APL-2019-063956

PATIENT
  Age: 39 Year
  Sex: Female
  Weight: 67 kg

DRUGS (8)
  1. LIDOCAINE HYDROCHLORIDE [Suspect]
     Active Substance: LIDOCAINE HYDROCHLORIDE
     Indication: Local anaesthesia
     Route: 008
  2. LIDOCAINE [Suspect]
     Active Substance: LIDOCAINE
     Indication: Product used for unknown indication
     Route: 008
  3. ROPIVACAINE [Concomitant]
     Active Substance: ROPIVACAINE
     Indication: Epidural analgesia
     Dosage: 6 MILLILITER, EVERY HOUR
     Route: 008
  4. ROPIVACAINE [Concomitant]
     Active Substance: ROPIVACAINE
     Route: 008
  5. ROPIVACAINE [Concomitant]
     Active Substance: ROPIVACAINE
     Route: 008
  6. FENTANYL [Concomitant]
     Active Substance: FENTANYL
     Indication: Epidural analgesia
     Route: 008
  7. FENTANYL [Concomitant]
     Active Substance: FENTANYL
     Dosage: 6 MILLILITER, EVERY HOUR
     Route: 008
  8. FENTANYL [Concomitant]
     Active Substance: FENTANYL
     Route: 037

REACTIONS (2)
  - Nerve block [Recovered/Resolved]
  - Horner^s syndrome [Recovered/Resolved]
